FAERS Safety Report 25355138 (Version 1)
Quarter: 2025Q2

REPORT INFORMATION
  Report Type: Report from Study
  Country: US (occurrence: US)
  Receive Date: 20250524
  Receipt Date: 20250524
  Transmission Date: 20250716
  Serious: Yes (Other)
  Sender: TAKEDA
  Company Number: US-TAKEDA-2016BLT006551

PATIENT
  Sex: Female

DRUGS (6)
  1. HUMAN IMMUNOGLOBULIN G [Suspect]
     Active Substance: HUMAN IMMUNOGLOBULIN G
     Indication: Primary immunodeficiency syndrome
  2. CUVITRU [Suspect]
     Active Substance: HUMAN IMMUNOGLOBULIN G
     Indication: Primary immunodeficiency syndrome
     Dosage: 8 GRAM, 1/WEEK
  3. HYQVIA [Suspect]
     Active Substance: HUMAN IMMUNOGLOBULIN G\HYALURONIDASE (HUMAN RECOMBINANT)
     Indication: Product used for unknown indication
  4. PRIVIGEN [Suspect]
     Active Substance: HUMAN IMMUNOGLOBULIN G
     Indication: Primary immunodeficiency syndrome
     Dosage: UNK UNK, MONTHLY
  5. DUPIXENT [Suspect]
     Active Substance: DUPILUMAB
     Indication: Combined immunodeficiency
     Dosage: 200 MILLIGRAM, Q4WEEKS
  6. DUPIXENT [Suspect]
     Active Substance: DUPILUMAB
     Indication: Dermatitis atopic
     Dosage: 300 MILLIGRAM, Q2WEEKS

REACTIONS (13)
  - Systemic lupus erythematosus [Unknown]
  - Weight increased [Unknown]
  - Skin disorder [Unknown]
  - Neuralgia [Unknown]
  - Crying [Unknown]
  - Pain of skin [Unknown]
  - Product use in unapproved indication [Unknown]
  - Dry skin [Unknown]
  - Incorrect dose administered [Unknown]
  - Rash [Unknown]
  - Anxiety [Unknown]
  - Pain [Unknown]
  - Infusion related reaction [Unknown]
